FAERS Safety Report 6365910-7 (Version None)
Quarter: 2009Q3

REPORT INFORMATION
  Report Type: 
  Country: None (occurrence: None)
  Receive Date: 20090919
  Receipt Date: 20090827
  Transmission Date: 20100115
  Serious: No
  Sender: FDA-Public Use
  Company Number: US-ABBOTT-09P-163-0594171-00

PATIENT
  Sex: Male
  Weight: 113.5 kg

DRUGS (11)
  1. HUMIRA [Suspect]
     Indication: ACCIDENTAL EXPOSURE
     Dates: start: 20090826, end: 20090826
  2. LORATADINE [Concomitant]
     Indication: DRUG USE FOR UNKNOWN INDICATION
  3. ALLOPURINOL [Concomitant]
     Indication: DRUG USE FOR UNKNOWN INDICATION
  4. DIOVAN [Concomitant]
     Indication: DRUG USE FOR UNKNOWN INDICATION
  5. GLUCOPHAGE [Concomitant]
     Indication: DRUG USE FOR UNKNOWN INDICATION
  6. AVANDIA [Concomitant]
     Indication: DRUG USE FOR UNKNOWN INDICATION
  7. TENORMIN [Concomitant]
     Indication: DRUG USE FOR UNKNOWN INDICATION
  8. PERIOSTAT [Concomitant]
     Indication: DRUG USE FOR UNKNOWN INDICATION
  9. BYETTA [Concomitant]
     Indication: DRUG USE FOR UNKNOWN INDICATION
  10. NORVASC [Concomitant]
     Indication: DRUG USE FOR UNKNOWN INDICATION
  11. CRESTOR [Concomitant]
     Indication: DRUG USE FOR UNKNOWN INDICATION

REACTIONS (1)
  - ACCIDENTAL NEEDLE STICK [None]
